FAERS Safety Report 14925841 (Version 9)
Quarter: 2019Q1

REPORT INFORMATION
  Report Type: Spontaneous
  Country: US (occurrence: US)
  Receive Date: 20180522
  Receipt Date: 20190326
  Transmission Date: 20190417
  Serious: Yes (Hospitalization)
  Sender: FDA-Public Use
  Company Number: US-ACTELION-A-NJ2018-172403

PATIENT
  Age: 69 Year
  Sex: Female

DRUGS (1)
  1. OPSUMIT [Suspect]
     Active Substance: MACITENTAN
     Indication: PULMONARY ARTERIAL HYPERTENSION
     Dosage: 10 MG, QD
     Route: 048
     Dates: start: 20180413

REACTIONS (24)
  - Renal failure [Recovered/Resolved]
  - Peripheral swelling [Unknown]
  - Sinus congestion [Unknown]
  - Bronchitis [Unknown]
  - Sarcoidosis [Recovered/Resolved]
  - Malaise [Unknown]
  - Adverse event [Not Recovered/Not Resolved]
  - Paranasal sinus discomfort [Unknown]
  - Lung infection [Unknown]
  - Infection [Unknown]
  - Pyrexia [Unknown]
  - Pruritus [Unknown]
  - Pulmonary hypertension [Recovered/Resolved]
  - Nasal discomfort [Not Recovered/Not Resolved]
  - Condition aggravated [Recovered/Resolved]
  - Rash pruritic [Not Recovered/Not Resolved]
  - Asthenia [Not Recovered/Not Resolved]
  - Skin irritation [Not Recovered/Not Resolved]
  - Fatigue [Unknown]
  - Dyspnoea [Unknown]
  - Disease complication [Recovered/Resolved]
  - Epistaxis [Not Recovered/Not Resolved]
  - Fluid retention [Unknown]
  - Anaemia [Unknown]

NARRATIVE: CASE EVENT DATE: 201804
